FAERS Safety Report 8879208 (Version 1)
Quarter: 2012Q4

REPORT INFORMATION
  Report Type: Spontaneous
  Country: SE (occurrence: None)
  Receive Date: 20121026
  Receipt Date: 20121026
  Transmission Date: 20130627
  Serious: Yes (Hospitalization)
  Sender: FDA-Public Use
  Company Number: DSA_60393_2012

PATIENT
  Age: 76 Year
  Sex: Male

DRUGS (8)
  1. ENALAPRIL MALEATE [Suspect]
     Indication: PRODUCT USED FOR UNKNOWN INDICATION
     Dosage: DF ORAL
     Route: 048
  2. IPREN [Suspect]
     Indication: PRODUCT USED FOR UNKNOWN INDICATION
     Dosage: DF
  3. METOPROLOL [Concomitant]
  4. ATARAX [Concomitant]
  5. TERRACORTRIL [Concomitant]
  6. PERSANTIN [Concomitant]
  7. PROPYLESS [Concomitant]
  8. HYDROCORTISONE [Concomitant]

REACTIONS (4)
  - Oesophagitis [None]
  - Duodenal ulcer [None]
  - Dehydration [None]
  - Renal failure acute [None]
